FAERS Safety Report 8174594-7 (Version None)
Quarter: 2012Q1

REPORT INFORMATION
  Report Type: 
  Country: None (occurrence: None)
  Receive Date: 20120229
  Receipt Date: 20120223
  Transmission Date: 20120608
  Serious: No
  Sender: FDA-Public Use
  Company Number: US-PFIZER INC-2012052744

PATIENT
  Age: 59 Year
  Sex: Female

DRUGS (10)
  1. PREDNISONE TAB [Suspect]
  2. SYNTHROID [Concomitant]
  3. CELEXA [Concomitant]
  4. ACETYLSALICYLIC ACID [Concomitant]
  5. LASIX [Concomitant]
  6. NEURONTIN [Concomitant]
  7. COUMADIN [Concomitant]
  8. IBUPROFEN (ADVIL) [Suspect]
  9. METFORMIN [Concomitant]
  10. CARAFATE [Concomitant]

REACTIONS (1)
  - DRUG HYPERSENSITIVITY [None]
